FAERS Safety Report 8146089-8 (Version None)
Quarter: 2012Q1

REPORT INFORMATION
  Report Type: 
  Country: None (occurrence: None)
  Receive Date: 20120217
  Receipt Date: 20110502
  Transmission Date: 20120608
  Serious: No
  Sender: FDA-Public Use
  Company Number: US-ABBOTT-11P-163-0722968-00

PATIENT
  Sex: Female
  Weight: 86.714 kg

DRUGS (10)
  1. ATIVAN [Concomitant]
     Indication: PRODUCT USED FOR UNKNOWN INDICATION
  2. SIMCOR [Suspect]
     Indication: LOW DENSITY LIPOPROTEIN INCREASED
  3. ULTRAM [Concomitant]
     Indication: PRODUCT USED FOR UNKNOWN INDICATION
  4. FLEXERIL [Concomitant]
     Indication: PRODUCT USED FOR UNKNOWN INDICATION
  5. FLONASE [Concomitant]
     Indication: PRODUCT USED FOR UNKNOWN INDICATION
     Dosage: 2 SPRAYS
  6. SIMCOR [Suspect]
     Indication: HEPATIC STEATOSIS
     Dosage: 500/20 MG AT BEDTIME
     Dates: start: 20110411
  7. CALTRATE WITH VITAMIN D [Concomitant]
     Indication: PRODUCT USED FOR UNKNOWN INDICATION
  8. SUMATRIPAN [Concomitant]
     Indication: PRODUCT USED FOR UNKNOWN INDICATION
  9. SIMCOR [Suspect]
     Indication: HIGH DENSITY LIPOPROTEIN DECREASED
  10. UNKNOWN HORMONE PELLET MEDICATION [Concomitant]
     Indication: PRODUCT USED FOR UNKNOWN INDICATION
     Dosage: INJECTED INTO HER HIP

REACTIONS (4)
  - SKIN BURNING SENSATION [None]
  - FLUSHING [None]
  - PRURITUS [None]
  - FEELING HOT [None]
